FAERS Safety Report 6248036-2 (Version None)
Quarter: 2009Q2

REPORT INFORMATION
  Report Type: 
  Country: None (occurrence: None)
  Receive Date: 20090626
  Receipt Date: 20090618
  Transmission Date: 20091009
  Serious: Yes (Death, Hospitalization, Disabling)
  Sender: FDA-Public Use
  Company Number: US-GENENTECH-285410

PATIENT
  Sex: Male
  Weight: 130.9 kg

DRUGS (20)
  1. RITUXAN [Suspect]
     Indication: CHRONIC LYMPHOCYTIC LEUKAEMIA
     Dosage: UNK
     Route: 065
     Dates: start: 20080101, end: 20080501
  2. RITUXAN [Suspect]
     Dosage: UNK
     Dates: end: 20080501
  3. CC-5013 [Suspect]
     Indication: CHRONIC LYMPHOCYTIC LEUKAEMIA
     Dosage: 5 MG, QOD
     Route: 048
     Dates: start: 20081201, end: 20090302
  4. CC-5013 [Suspect]
     Dosage: 2.5 MG, QD
     Route: 048
     Dates: start: 20081209, end: 20081223
  5. CC-5013 [Suspect]
     Dosage: 2.5 MG, QOD
     Route: 048
     Dates: start: 20081229, end: 20090202
  6. CC-5013 [Suspect]
     Dosage: 2.5 MG, QD
     Route: 048
     Dates: start: 20090203, end: 20090302
  7. FLUDARABINE PHOSPHATE [Suspect]
     Indication: CHRONIC LYMPHOCYTIC LEUKAEMIA
     Dosage: UNK
     Dates: start: 20080101, end: 20080501
  8. FLUDARABINE PHOSPHATE [Suspect]
     Dosage: UNK
     Route: 065
     Dates: end: 20080501
  9. CYTOXAN [Suspect]
     Indication: CHRONIC LYMPHOCYTIC LEUKAEMIA
     Dosage: UNK
     Route: 065
     Dates: start: 20080101, end: 20080501
  10. CYTOXAN [Suspect]
     Dosage: UNK
     Dates: end: 20080501
  11. NEUPOGEN [Concomitant]
     Indication: NEUTROPENIA
     Dosage: UNK
  12. ALLOPURINOL [Concomitant]
     Indication: PROPHYLAXIS
     Dosage: 300 MG, UNK
     Route: 048
     Dates: start: 20081209
  13. METOPROLOL SUCCINATE [Concomitant]
     Indication: HYPERLIPIDAEMIA
     Dosage: 50 MG, UNK
     Route: 048
     Dates: start: 20080101
  14. LISINOPRIL [Concomitant]
     Indication: HYPERTENSION
     Dosage: 10 MG, QD
     Route: 048
     Dates: start: 20080101
  15. ASCORBIC ACID [Concomitant]
     Indication: MEDICAL DIET
     Dosage: UNK
     Route: 048
     Dates: start: 20080101
  16. METAMUCIL [Concomitant]
     Indication: CONSTIPATION
     Dosage: UNK
     Route: 048
     Dates: start: 20080101
  17. METAMUCIL [Concomitant]
     Indication: PROPHYLAXIS
  18. NEUPOGEN [Concomitant]
     Indication: LEUKOPENIA
     Dosage: UNK
     Route: 042
     Dates: start: 20081117, end: 20081119
  19. NEUPOGEN [Concomitant]
     Indication: NEUTROPENIA
     Dosage: UNK
     Route: 042
     Dates: start: 20081223
  20. METOPROLOL SUCCINATE [Concomitant]
     Indication: DRUG USE FOR UNKNOWN INDICATION
     Dosage: 50 MG, QD
     Route: 065

REACTIONS (1)
  - PROGRESSIVE MULTIFOCAL LEUKOENCEPHALOPATHY [None]
